FAERS Safety Report 4533039-6 (Version None)
Quarter: 2004Q4

REPORT INFORMATION
  Report Type: 
  Country: None (occurrence: None)
  Receive Date: 20041210
  Receipt Date: 20040823
  Transmission Date: 20050328
  Serious: No
  Sender: FDA-Public Use
  Company Number: 2004-00384

PATIENT
  Age: 74 Year
  Sex: Male
  Weight: 84.8 kg

DRUGS (5)
  1. VELCADE [Suspect]
     Indication: MANTLE CELL LYMPHOMA
     Dosage: 3.00 MG, INTRAVENOUS
     Route: 042
     Dates: start: 20040701, end: 20040820
  2. VERAPAMIL [Concomitant]
  3. DIGOXIN [Concomitant]
  4. MINOCYCLINE HCL [Concomitant]
  5. ACYCLOVIR [Concomitant]

REACTIONS (7)
  - ABDOMINAL PAIN UPPER [None]
  - ANOREXIA [None]
  - HEADACHE [None]
  - NAUSEA [None]
  - NEUROPATHY PERIPHERAL [None]
  - PAIN [None]
  - RETCHING [None]
